FAERS Safety Report 6373698-9 (Version None)
Quarter: 2009Q3

REPORT INFORMATION
  Report Type: 
  Country: None (occurrence: None)
  Receive Date: 20090924
  Receipt Date: 20090428
  Transmission Date: 20100115
  Serious: No
  Sender: FDA-Public Use
  Company Number: US-ASTRAZENECA-2009UW10565

PATIENT
  Sex: Female
  Weight: 54.4 kg

DRUGS (2)
  1. SEROQUEL [Suspect]
     Indication: SLEEP DISORDER
     Route: 048
     Dates: start: 20070101, end: 20080101
  2. ANTIDEPRESSANT [Concomitant]

REACTIONS (5)
  - DYSARTHRIA [None]
  - JOB DISSATISFACTION [None]
  - QUALITY OF LIFE DECREASED [None]
  - RESTLESSNESS [None]
  - SLEEP-RELATED EATING DISORDER [None]
